FAERS Safety Report 18265916 (Version 2)
Quarter: 2020Q4

REPORT INFORMATION
  Report Type: Spontaneous
  Country: US (occurrence: US)
  Receive Date: 20200915
  Receipt Date: 20201216
  Transmission Date: 20210113
  Serious: Yes (Disabling, Other)
  Sender: FDA-Public Use
  Company Number: US-ASTRAZENECA-2020SF15704

PATIENT
  Age: 21624 Day
  Sex: Male

DRUGS (41)
  1. HYDROCHLOROT [Concomitant]
     Active Substance: HYDROCHLOROTHIAZIDE
  2. PEPTO-BISMOL [Concomitant]
     Active Substance: BISMUTH SUBSALICYLATE
  3. LOVASTATIN. [Concomitant]
     Active Substance: LOVASTATIN
  4. FERRITIN [Concomitant]
     Active Substance: FERRITIN
  5. SODIUM CHLORIDE. [Concomitant]
     Active Substance: SODIUM CHLORIDE
  6. SULFAMETHOXAZOLE-TMP [Concomitant]
     Active Substance: SULFAMETHOXAZOLE\TRIMETHOPRIM
  7. ATORVASTATIN [Concomitant]
     Active Substance: ATORVASTATIN
     Indication: BLOOD CHOLESTEROL
     Dates: start: 2015, end: 2020
  8. IRON [Concomitant]
     Active Substance: IRON
     Indication: ANAEMIA
     Dates: start: 2020
  9. CHROMIUM [Concomitant]
     Active Substance: CHROMIC CHLORIDE\CHROMIUM
     Indication: GENERAL PHYSICAL CONDITION
     Dates: start: 2020
  10. NYSTAT/TRIAM [Concomitant]
  11. AZITHROMYCIN ANHYDROUS. [Concomitant]
     Active Substance: AZITHROMYCIN ANHYDROUS
  12. FUROSEMIDE. [Concomitant]
     Active Substance: FUROSEMIDE
  13. KLOR-CON [Concomitant]
     Active Substance: POTASSIUM CHLORIDE
  14. SIMVASTATIN. [Concomitant]
     Active Substance: SIMVASTATIN
  15. LANTUS [Concomitant]
     Active Substance: INSULIN GLARGINE
  16. PRILOSEC OTC [Suspect]
     Active Substance: OMEPRAZOLE MAGNESIUM
     Route: 048
     Dates: start: 2004, end: 2017
  17. METROPOLO [Concomitant]
     Indication: BLOOD PRESSURE MEASUREMENT
     Dates: start: 2015, end: 2020
  18. GEMFIBROZIL. [Concomitant]
     Active Substance: GEMFIBROZIL
  19. BENICAR HCT [Concomitant]
     Active Substance: HYDROCHLOROTHIAZIDE\OLMESARTAN MEDOXOMIL
  20. IBUPROFEN. [Concomitant]
     Active Substance: IBUPROFEN
  21. PRILOSEC [Suspect]
     Active Substance: OMEPRAZOLE MAGNESIUM
     Indication: GASTROOESOPHAGEAL REFLUX DISEASE
     Dosage: GENERIC
     Route: 065
     Dates: start: 201009, end: 201508
  22. VITAMIN D [Concomitant]
     Active Substance: VITAMIN D NOS
     Indication: GENERAL PHYSICAL CONDITION
     Dates: start: 2020
  23. ZINC. [Concomitant]
     Active Substance: ZINC
     Indication: GENERAL PHYSICAL CONDITION
     Dates: start: 2020
  24. MILK OF MAGNESIA [Concomitant]
     Active Substance: MAGNESIUM HYDROXIDE
  25. TROPONIN [Concomitant]
  26. PRILOSEC [Suspect]
     Active Substance: OMEPRAZOLE MAGNESIUM
     Indication: GASTROOESOPHAGEAL REFLUX DISEASE
     Route: 048
     Dates: start: 200406, end: 201709
  27. TYLENOL [Concomitant]
     Active Substance: ACETAMINOPHEN
     Indication: PAIN
     Dates: start: 2020
  28. RANITIDINE. [Concomitant]
     Active Substance: RANITIDINE
  29. TUMS [Concomitant]
     Active Substance: CALCIUM CARBONATE
  30. ATENOLOL. [Concomitant]
     Active Substance: ATENOLOL
  31. METFORMIN [Concomitant]
     Active Substance: METFORMIN HYDROCHLORIDE
  32. HYDROZINE [Concomitant]
     Indication: BLOOD PRESSURE MEASUREMENT
     Dates: start: 2015, end: 2020
  33. ROLAIDS [Concomitant]
     Active Substance: CALCIUM CARBONATE\MAGNESIUM HYDROXIDE
  34. PROMETHAZINE [Concomitant]
     Active Substance: PROMETHAZINE HYDROCHLORIDE
  35. HEPARIN [Concomitant]
     Active Substance: HEPARIN SODIUM
  36. PANTOPRAZOLE [Suspect]
     Active Substance: PANTOPRAZOLE
     Route: 065
  37. CEPHALEXIN. [Concomitant]
     Active Substance: CEPHALEXIN
  38. MUPIROCIN. [Concomitant]
     Active Substance: MUPIROCIN
  39. LISINOPRIL/HCTZ [Concomitant]
     Active Substance: HYDROCHLOROTHIAZIDE\LISINOPRIL
  40. BENZONATATE. [Concomitant]
     Active Substance: BENZONATATE
  41. CALCIUM [Concomitant]
     Active Substance: CALCIUM

REACTIONS (8)
  - Renal failure [Unknown]
  - Chronic kidney disease [Not Recovered/Not Resolved]
  - Stress [Unknown]
  - Depression [Unknown]
  - Acute kidney injury [Not Recovered/Not Resolved]
  - Chronic kidney disease-mineral and bone disorder [Unknown]
  - Nephrogenic anaemia [Unknown]
  - Anxiety [Unknown]

NARRATIVE: CASE EVENT DATE: 20170401
